FAERS Safety Report 17380738 (Version 1)
Quarter: 2020Q1

REPORT INFORMATION
  Report Type: Spontaneous
  Country: US (occurrence: US)
  Receive Date: 20200206
  Receipt Date: 20200206
  Transmission Date: 20200409
  Serious: No
  Sender: FDA-Public Use
  Company Number: None

PATIENT
  Sex: Female

DRUGS (2)
  1. CRESTOR [Suspect]
     Active Substance: ROSUVASTATIN CALCIUM
  2. PRAVACHOL [Suspect]
     Active Substance: PRAVASTATIN SODIUM

REACTIONS (2)
  - Drug intolerance [None]
  - Myalgia [None]
